FAERS Safety Report 16563317 (Version 4)
Quarter: 2019Q3

REPORT INFORMATION
  Report Type: Spontaneous
  Country: PL (occurrence: PL)
  Receive Date: 20190711
  Receipt Date: 20190801
  Transmission Date: 20191004
  Serious: Yes (Death, Hospitalization, Other)
  Sender: FDA-Public Use
  Company Number: PHHY2019PL159203

PATIENT
  Age: 78 Year
  Sex: Female

DRUGS (4)
  1. METRONIDAZOLE. [Suspect]
     Active Substance: METRONIDAZOLE
     Indication: DIARRHOEA
  2. METRONIDAZOLE. [Suspect]
     Active Substance: METRONIDAZOLE
     Indication: CLOSTRIDIUM DIFFICILE INFECTION
     Dosage: 500 MG, TID, PATIENT RECEIVED DRUG ON AN UNREPORTED DATE IN FEB (UNKNOWN YEAR)
     Route: 048
  3. METRONIDAZOLE. [Suspect]
     Active Substance: METRONIDAZOLE
     Indication: DIARRHOEA
  4. CIPROFLOXACIN. [Suspect]
     Active Substance: CIPROFLOXACIN
     Indication: INFLAMMATORY MARKER INCREASED
     Dosage: 2 MG/ML, ON 06FEB(UNKNOWN YEAR) DUE TO WORSENING INFLAMMATORY PARAMETERS CIPROFLOXACIN
     Route: 065

REACTIONS (13)
  - Glutamate dehydrogenase [Unknown]
  - Inflammation [Unknown]
  - Disturbance in attention [Fatal]
  - General physical health deterioration [Unknown]
  - Diarrhoea [Fatal]
  - Drug ineffective [Unknown]
  - Respiratory rate decreased [Fatal]
  - Asymptomatic bacteriuria [Unknown]
  - Clostridium difficile infection [Fatal]
  - Death [Fatal]
  - Blood creatinine increased [Unknown]
  - Culture urine positive [Unknown]
  - Leukocytosis [Unknown]

NARRATIVE: CASE EVENT DATE: 20160208
